FAERS Safety Report 21315525 (Version 1)
Quarter: 2022Q3

REPORT INFORMATION
  Report Type: Spontaneous
  Country: US (occurrence: US)
  Receive Date: 20220909
  Receipt Date: 20220909
  Transmission Date: 20221027
  Serious: Yes (Life-Threatening, Hospitalization, Disabling, Other)
  Sender: FDA-Public Use
  Company Number: US-BoehringerIngelheim-2022-BI-191305

PATIENT
  Age: 74 Year
  Sex: Male

DRUGS (1)
  1. STIOLTO RESPIMAT [Suspect]
     Active Substance: OLODATEROL HYDROCHLORIDE\TIOTROPIUM BROMIDE MONOHYDRATE
     Indication: Chronic obstructive pulmonary disease
     Dosage: 2 PUFFS,  FORM OF ADMIN.: INHALATION SPRAY
     Route: 055
     Dates: start: 2021

REACTIONS (7)
  - Subdural haematoma [Recovered/Resolved with Sequelae]
  - Malignant melanoma [Unknown]
  - Hemiplegia [Unknown]
  - Cardiac arrest [Recovered/Resolved]
  - Amnesia [Unknown]
  - Gait disturbance [Unknown]
  - Fine motor skill dysfunction [Unknown]

NARRATIVE: CASE EVENT DATE: 20210215
